FAERS Safety Report 17194936 (Version 1)
Quarter: 2019Q4

REPORT INFORMATION
  Report Type: Report from Study
  Country: US (occurrence: US)
  Receive Date: 20191224
  Receipt Date: 20191224
  Transmission Date: 20200122
  Serious: No
  Sender: FDA-Public Use
  Company Number: NVSC2019US076569

PATIENT
  Age: 37 Year
  Sex: Female

DRUGS (1)
  1. COSENTYX [Suspect]
     Active Substance: SECUKINUMAB
     Indication: PSORIASIS
     Dosage: 300 MG AT WEEK 4, THEN Q4W
     Route: 058

REACTIONS (6)
  - Psoriasis [Unknown]
  - Arthralgia [Unknown]
  - Macule [Unknown]
  - Drug ineffective [Unknown]
  - Headache [Unknown]
  - Joint stiffness [Unknown]
